FAERS Safety Report 23516931 (Version 1)
Quarter: 2024Q1

REPORT INFORMATION
  Report Type: Spontaneous
  Country: US (occurrence: None)
  Receive Date: 20240212
  Receipt Date: 20240212
  Transmission Date: 20240409
  Serious: Yes (Disabling)
  Sender: FDA-Public Use
  Company Number: None

PATIENT
  Age: 79 Year
  Sex: Female
  Weight: 52.16 kg

DRUGS (10)
  1. EYLEA [Suspect]
     Active Substance: AFLIBERCEPT
  2. PACE MAKER + DEFIBULATOR [Concomitant]
  3. MEXILETINE [Concomitant]
     Active Substance: MEXILETINE
  4. SPIRONOLACTONE [Concomitant]
     Active Substance: SPIRONOLACTONE
  5. ELIQUIS [Concomitant]
     Active Substance: APIXABAN
  6. CARVEDILOL [Concomitant]
     Active Substance: CARVEDILOL
  7. ENTRESTO [Concomitant]
     Active Substance: SACUBITRIL\VALSARTAN
  8. SIMVASTATIN [Concomitant]
     Active Substance: SIMVASTATIN
  9. VITAMIN D3 [Concomitant]
     Active Substance: CHOLECALCIFEROL
  10. ESTRADIOL [Concomitant]
     Active Substance: ESTRADIOL

REACTIONS (2)
  - Pain in extremity [None]
  - Asthenia [None]

NARRATIVE: CASE EVENT DATE: 20231205
